FAERS Safety Report 9391004 (Version 1)
Quarter: 2013Q3

REPORT INFORMATION
  Report Type: Spontaneous
  Country: CY (occurrence: CY)
  Receive Date: 20130709
  Receipt Date: 20130709
  Transmission Date: 20140515
  Serious: Yes (Other)
  Sender: FDA-Public Use
  Company Number: CY-JNJFOC-20130701376

PATIENT
  Age: 37 Year
  Sex: Male

DRUGS (1)
  1. PALEXIA [Suspect]
     Indication: BACK PAIN
     Dosage: 2 DOSES DAILY
     Route: 048
     Dates: start: 2013, end: 2013

REACTIONS (3)
  - Ejaculation disorder [Recovered/Resolved]
  - Agitation [Recovered/Resolved]
  - Nightmare [Recovered/Resolved]
